FAERS Safety Report 23845829 (Version 1)
Quarter: 2024Q2

REPORT INFORMATION
  Report Type: Spontaneous
  Country: IN (occurrence: IN)
  Receive Date: 20240512
  Receipt Date: 20240512
  Transmission Date: 20240716
  Serious: Yes (Hospitalization, Other)
  Sender: FDA-Public Use
  Company Number: IN-SANDOZ-SDZ2024IN046308

PATIENT
  Sex: Male

DRUGS (1)
  1. TACROLIMUS [Suspect]
     Active Substance: TACROLIMUS
     Indication: Renal transplant
     Dosage: 1.5 MG, BID
     Route: 048

REACTIONS (14)
  - Lymph node tuberculosis [Unknown]
  - Fungal sepsis [Unknown]
  - Dyskinesia [Unknown]
  - Periorbital swelling [Unknown]
  - Oedema peripheral [Unknown]
  - Abdominal distension [Unknown]
  - Nocturia [Unknown]
  - Hypertension [Unknown]
  - Vision blurred [Unknown]
  - Peripheral swelling [Unknown]
  - Chest pain [Unknown]
  - Blood creatinine increased [Unknown]
  - Procedural site reaction [Unknown]
  - Gravitational oedema [Unknown]
